FAERS Safety Report 10424962 (Version 1)
Quarter: 2014Q3

REPORT INFORMATION
  Report Type: Spontaneous
  Country: US (occurrence: None)
  Receive Date: 20140725
  Receipt Date: 20140725
  Transmission Date: 20150326
  Serious: No
  Sender: FDA-Public Use
  Company Number: AP356-00567-SPO-US

PATIENT
  Sex: Female
  Weight: 90.9 kg

DRUGS (1)
  1. BELVIQ [Suspect]
     Active Substance: LORCASERIN HYDROCHLORIDE
     Indication: WEIGHT DECREASED
     Route: 048

REACTIONS (5)
  - Mydriasis [None]
  - Nausea [None]
  - Insomnia [None]
  - Palpitations [None]
  - Increased appetite [None]
